FAERS Safety Report 4701391-4 (Version None)
Quarter: 2005Q2

REPORT INFORMATION
  Report Type: 
  Country: None (occurrence: None)
  Receive Date: 20050627
  Receipt Date: 20050617
  Transmission Date: 20051028
  Serious: Yes (Hospitalization)
  Sender: FDA-Public Use
  Company Number: 2005-05-0628

PATIENT
  Age: 67 Year
  Sex: Female
  Weight: 63 kg

DRUGS (6)
  1. PEG-INTRON [Suspect]
     Indication: HEPATITIS C
     Dosage: 800 MG ORAL
     Route: 048
     Dates: start: 20050308, end: 20050502
  2. PEG-INTRON [Suspect]
     Indication: HEPATITIS C
     Dosage: 100 MCG QW SUBCUTANEOUS
     Route: 058
     Dates: start: 20050309, end: 20050427
  3. URSO TABLETS [Concomitant]
  4. GLYCYRON TABLETS [Concomitant]
  5. PROMAC (POLAPREZINC) [Concomitant]
  6. AMLODIPINE BESILATE [Concomitant]

REACTIONS (8)
  - CONDITION AGGRAVATED [None]
  - DRUG ERUPTION [None]
  - INJECTION SITE DERMATITIS [None]
  - INJECTION SITE ERYTHEMA [None]
  - INJECTION SITE OEDEMA [None]
  - MALAISE [None]
  - PRURITUS [None]
  - RASH GENERALISED [None]
